FAERS Safety Report 8309378-X (Version None)
Quarter: 2012Q2

REPORT INFORMATION
  Report Type: 
  Country: None (occurrence: None)
  Receive Date: 20120418
  Receipt Date: 20120418
  Transmission Date: 20120825
  Serious: Yes (Other)
  Sender: FDA-Public Use
  Company Number: None

PATIENT
  Age: 62 Year
  Sex: Male

DRUGS (2)
  1. SUTENT [Suspect]
     Dosage: 37.5MG DAILY PO
     Route: 048
     Dates: start: 20120126, end: 20120401
  2. SUTENT [Suspect]

REACTIONS (2)
  - TONGUE BLISTERING [None]
  - AGEUSIA [None]
